FAERS Safety Report 5231151-X (Version None)
Quarter: 2007Q1

REPORT INFORMATION
  Report Type: 
  Country: None (occurrence: None)
  Receive Date: 20070206
  Receipt Date: 20070126
  Transmission Date: 20070707
  Serious: Yes (Hospitalization)
  Sender: FDA-Public Use
  Company Number: IT-ROCHE-480195

PATIENT
  Age: 78 Year
  Sex: Male

DRUGS (7)
  1. TICLID [Suspect]
     Indication: STENT PLACEMENT
     Route: 048
     Dates: start: 20061127, end: 20061224
  2. TRIATEC [Concomitant]
     Route: 048
  3. BI-EUGLUCON M [Concomitant]
     Route: 048
  4. GLUCOBAY [Concomitant]
     Route: 048
  5. PANTOPAN [Concomitant]
     Route: 048
  6. ASPIRIN [Concomitant]
     Route: 048
  7. CARDICOR [Concomitant]
     Route: 048

REACTIONS (3)
  - LEUKOPENIA [None]
  - SEPSIS [None]
  - URINARY TRACT INFECTION [None]
